FAERS Safety Report 7338112-5 (Version None)
Quarter: 2011Q1

REPORT INFORMATION
  Report Type: 
  Country: None (occurrence: None)
  Receive Date: 20110308
  Receipt Date: 20110223
  Transmission Date: 20110831
  Serious: Yes (Other)
  Sender: FDA-Public Use
  Company Number: PHFR2011GB01331

PATIENT
  Sex: Male
  Weight: 95 kg

DRUGS (4)
  1. SERTRALINE [Concomitant]
     Indication: DEPRESSION
     Dosage: 100 MG, QD
  2. HALOPERIDOL [Concomitant]
     Dosage: 10 MG, QD
     Route: 048
  3. AMISULPRIDE [Concomitant]
     Indication: SCHIZOPHRENIA
     Dosage: 800 MG, QD
  4. CLOZARIL [Suspect]
     Dosage: UNK DF, ONCE/SINGLE
     Route: 048

REACTIONS (3)
  - ACCIDENTAL EXPOSURE [None]
  - SALIVARY HYPERSECRETION [None]
  - LOSS OF CONSCIOUSNESS [None]
